FAERS Safety Report 4411423-9 (Version None)
Quarter: 2004Q2

REPORT INFORMATION
  Report Type: 
  Country: None (occurrence: None)
  Receive Date: 20040630
  Receipt Date: 20040524
  Transmission Date: 20050107
  Serious: No
  Sender: FDA-Public Use
  Company Number: 04P-163-0261822-00

PATIENT
  Age: 79 Year
  Sex: Female
  Weight: 60.782 kg

DRUGS (11)
  1. HUMIRA [Suspect]
     Indication: RHEUMATOID ARTHRITIS
     Dosage: 40 MG, 1 IN 2 WK, SUBCUTANEOUS
     Route: 058
     Dates: start: 20040401, end: 20040401
  2. HUMIRA [Suspect]
     Indication: RHEUMATOID ARTHRITIS
     Dosage: 40 MG, 1 IN 2 WK, SUBCUTANEOUS
     Route: 058
     Dates: start: 20040501
  3. FOLIC ACID [Concomitant]
  4. ERGOCALCIFEROL [Concomitant]
  5. CALCIUM [Concomitant]
  6. LANSOPRAZOLE [Concomitant]
  7. IRBESARTAN [Concomitant]
  8. CONJUGATED ESTROGEN [Concomitant]
  9. INSULIN [Concomitant]
  10. INSULIN GLARGINE [Concomitant]
  11. VICODIN [Concomitant]

REACTIONS (1)
  - ABDOMINAL PAIN UPPER [None]
